FAERS Safety Report 25636729 (Version 1)
Quarter: 2025Q3

REPORT INFORMATION
  Report Type: Spontaneous
  Country: US (occurrence: US)
  Receive Date: 20250804
  Receipt Date: 20250804
  Transmission Date: 20251021
  Serious: Yes (Life-Threatening, Hospitalization, Other)
  Sender: STRIDES
  Company Number: US-STRIDES PHARMA UK LTD.-2025SP009508

PATIENT
  Age: 40 Year
  Sex: Male

DRUGS (3)
  1. FLUOXETINE [Suspect]
     Active Substance: FLUOXETINE HYDROCHLORIDE
     Indication: Product used for unknown indication
     Route: 065
  2. DILTIAZEM [Suspect]
     Active Substance: DILTIAZEM
     Indication: Product used for unknown indication
     Route: 065
  3. METOPROLOL [Suspect]
     Active Substance: METOPROLOL
     Indication: Product used for unknown indication
     Route: 065

REACTIONS (8)
  - Cardiogenic shock [Recovered/Resolved]
  - Bradycardia [Recovered/Resolved]
  - Hypoperfusion [Recovered/Resolved]
  - Haemorrhagic transformation stroke [Recovered/Resolved]
  - Ischaemic stroke [Recovered/Resolved]
  - Cerebral haemorrhage [Recovered/Resolved]
  - Overdose [Unknown]
  - Toxicity to various agents [Recovered/Resolved]
